FAERS Safety Report 14977345 (Version 3)
Quarter: 2018Q3

REPORT INFORMATION
  Report Type: Spontaneous
  Country: US (occurrence: US)
  Receive Date: 20180606
  Receipt Date: 20180824
  Transmission Date: 20181010
  Serious: Yes (Other)
  Sender: FDA-Public Use
  Company Number: US-BIOGEN-2018BI00589848

PATIENT
  Age: 3 Year
  Sex: Male
  Weight: 4.09 kg

DRUGS (2)
  1. AVONEX [Suspect]
     Active Substance: INTERFERON BETA-1A
     Indication: MATERNAL EXPOSURE TIMING UNSPECIFIED
     Route: 064
     Dates: start: 20130522
  2. AVONEX [Suspect]
     Active Substance: INTERFERON BETA-1A
     Route: 064
     Dates: start: 20130617, end: 20140724

REACTIONS (7)
  - Pneumonia [Unknown]
  - Hypoacusis [Unknown]
  - Developmental delay [Not Recovered/Not Resolved]
  - Respiratory disorder [Unknown]
  - Autism spectrum disorder [Not Recovered/Not Resolved]
  - Cyanosis [Unknown]
  - Foetal exposure during pregnancy [Recovered/Resolved]
